FAERS Safety Report 4469271-X (Version None)
Quarter: 2004Q4

REPORT INFORMATION
  Report Type: 
  Country: None (occurrence: None)
  Receive Date: 20041008
  Receipt Date: 20030819
  Transmission Date: 20050328
  Serious: No
  Sender: FDA-Public Use
  Company Number: US-BRISTOL-MYERS SQUIBB COMPANY-12359535

PATIENT
  Age: 80 Year
  Sex: Female
  Weight: 67 kg

DRUGS (9)
  1. AVAPRO [Suspect]
     Indication: HYPERTENSION
     Route: 048
     Dates: start: 20030606, end: 20030101
  2. LOPRESSOR [Concomitant]
  3. SPIRONOLACTONE [Concomitant]
  4. THYROID TAB [Concomitant]
  5. PREMARIN [Concomitant]
  6. VITAMIN E [Concomitant]
  7. DARVOCET [Concomitant]
  8. TYLENOL [Concomitant]
  9. BENADRYL [Concomitant]
     Indication: SLEEP DISORDER

REACTIONS (4)
  - DYSGEUSIA [None]
  - ORAL DISCOMFORT [None]
  - ORAL PAIN [None]
  - SWELLING FACE [None]
